FAERS Safety Report 6696024-4 (Version None)
Quarter: 2010Q2

REPORT INFORMATION
  Report Type: 
  Country: None (occurrence: None)
  Receive Date: 20100426
  Receipt Date: 20100413
  Transmission Date: 20101027
  Serious: Yes (Hospitalization, Other)
  Sender: FDA-Public Use
  Company Number: PHEH2008US04569

PATIENT
  Sex: Female

DRUGS (18)
  1. ZOMETA [Suspect]
  2. AREDIA [Suspect]
     Dosage: MONTHLY
  3. LEVOTHYROXINE [Concomitant]
  4. VANCOMYCIN [Concomitant]
  5. ACETAMINOPHEN AND HYDROCODONE BITARTRATE [Concomitant]
  6. LOVENOX [Concomitant]
  7. WARFARIN SODIUM [Concomitant]
  8. SYNTHROID [Concomitant]
  9. NICOTINE [Concomitant]
  10. DIFLUCAN [Concomitant]
  11. PAXIL [Concomitant]
  12. METHADONE HCL [Concomitant]
  13. VIOXX [Concomitant]
  14. LORTAB [Concomitant]
  15. ANZEMET [Concomitant]
  16. CIPROFLOXACIN [Concomitant]
  17. MORPHINE [Concomitant]
  18. OXYCODONE [Concomitant]

REACTIONS (28)
  - ANHEDONIA [None]
  - ANXIETY [None]
  - BACK PAIN [None]
  - BONE DEBRIDEMENT [None]
  - BONE EROSION [None]
  - BONE SWELLING [None]
  - CELLULITIS [None]
  - CHILLS [None]
  - DENTAL CARIES [None]
  - DISABILITY [None]
  - HYPOAESTHESIA FACIAL [None]
  - HYPOAESTHESIA ORAL [None]
  - INJURY [None]
  - INTERVERTEBRAL DISC DEGENERATION [None]
  - LYMPHADENOPATHY [None]
  - MASS [None]
  - NAIL OPERATION [None]
  - OPEN WOUND [None]
  - OSTEITIS [None]
  - OSTEONECROSIS [None]
  - OVARIAN CYST [None]
  - PAIN [None]
  - PAIN IN EXTREMITY [None]
  - PAIN IN JAW [None]
  - RADIOTHERAPY [None]
  - SWELLING FACE [None]
  - TOOTH EXTRACTION [None]
  - TOOTH INFECTION [None]
